FAERS Safety Report 25855746 (Version 1)
Quarter: 2025Q3

REPORT INFORMATION
  Report Type: Spontaneous
  Country: PH (occurrence: PH)
  Receive Date: 20250928
  Receipt Date: 20250928
  Transmission Date: 20251021
  Serious: Yes (Hospitalization)
  Sender: AMGEN
  Company Number: PH-AMGEN-PHLSP2025178206

PATIENT
  Age: 83 Year
  Sex: Male

DRUGS (1)
  1. PROLIA [Suspect]
     Active Substance: DENOSUMAB
     Indication: Osteoporosis
     Route: 058
     Dates: start: 2020, end: 202505

REACTIONS (2)
  - Pneumonia [Unknown]
  - Osteopenia [Unknown]

NARRATIVE: CASE EVENT DATE: 20250701
